FAERS Safety Report 16449399 (Version 1)
Quarter: 2019Q2

REPORT INFORMATION
  Report Type: Spontaneous
  Country: US (occurrence: US)
  Receive Date: 20190619
  Receipt Date: 20190619
  Transmission Date: 20190711
  Serious: Yes (Life-Threatening, Other)
  Sender: FDA-Public Use
  Company Number: US-SUN PHARMACEUTICAL INDUSTRIES LTD-2019R1-210938

PATIENT
  Age: 21 Year
  Sex: Male

DRUGS (1)
  1. CLOZAPINE. [Suspect]
     Active Substance: CLOZAPINE
     Indication: SCHIZOPHRENIA
     Dosage: UNK
     Route: 065

REACTIONS (9)
  - Myocarditis [Unknown]
  - Pyrexia [Unknown]
  - Cardiomyopathy [Unknown]
  - Troponin increased [Unknown]
  - Blood pressure systolic increased [Recovered/Resolved]
  - Eosinophilia [Unknown]
  - Cardiotoxicity [Unknown]
  - Tachycardia [Unknown]
  - Sepsis [Unknown]
